FAERS Safety Report 15310067 (Version 1)
Quarter: 2018Q3

REPORT INFORMATION
  Report Type: Spontaneous
  Country: US (occurrence: US)
  Receive Date: 20180823
  Receipt Date: 20180823
  Transmission Date: 20181010
  Serious: Yes (Hospitalization, Other)
  Sender: FDA-Public Use
  Company Number: US-MALLINCKRODT-T201803530

PATIENT
  Age: 57 Year
  Sex: Female

DRUGS (3)
  1. VALIUM [Suspect]
     Active Substance: DIAZEPAM
     Indication: ANXIETY
     Dosage: 10MG EVERY FOUR TIMES DAILY PRN
     Route: 065
  2. FENTANYL TRANSDERMAL SYSTEM [Suspect]
     Active Substance: FENTANYL
     Indication: PRODUCT USED FOR UNKNOWN INDICATION
     Dosage: 50 MCG/HR
     Route: 062
     Dates: start: 20180728
  3. MORPHINE [Concomitant]
     Active Substance: MORPHINE
     Indication: BREAKTHROUGH PAIN
     Dosage: 30 MG
     Route: 065

REACTIONS (9)
  - Ear pain [Unknown]
  - Pyrexia [Unknown]
  - Gastrooesophageal reflux disease [Unknown]
  - Confusional state [Unknown]
  - Vomiting [Unknown]
  - Lymphadenopathy [Unknown]
  - Product adhesion issue [Unknown]
  - Urinary retention [Unknown]
  - Urinary tract infection [Unknown]

NARRATIVE: CASE EVENT DATE: 2018
